FAERS Safety Report 26124217 (Version 1)
Quarter: 2025Q4

REPORT INFORMATION
  Report Type: Spontaneous
  Country: EU (occurrence: EU)
  Receive Date: 20251205
  Receipt Date: 20251205
  Transmission Date: 20260118
  Serious: Yes (Other)
  Sender: DR REDDYS
  Company Number: None

PATIENT
  Age: 70 Year
  Sex: Male

DRUGS (6)
  1. AZACITIDINE [Suspect]
     Active Substance: AZACITIDINE
     Indication: Acute myeloid leukaemia recurrent
     Dosage: 1ST CYCLE WITH VENETOCLAX
     Dates: start: 202209
  2. AZACITIDINE [Suspect]
     Active Substance: AZACITIDINE
     Indication: Acute myeloid leukaemia
     Dosage: 5 CYCLES UNTIL APR/2023, WITH GRADUAL DOSE REDUCTION TO 5+14 (AZA+VEN)
     Dates: end: 202304
  3. VENETOCLAX [Suspect]
     Active Substance: VENETOCLAX
     Indication: Acute myeloid leukaemia recurrent
     Dosage: FIRST CYCLE WITH AZACITIDINE
     Dates: start: 202209
  4. VENETOCLAX [Suspect]
     Active Substance: VENETOCLAX
     Indication: Acute myeloid leukaemia
     Dosage: REDUCED
  5. VENETOCLAX [Suspect]
     Active Substance: VENETOCLAX
     Dosage: 5 CYCLES UNTIL APR/2023, WITH GRADUAL DOSE REDUCTION TO 5+14 (AZA+VEN)
     Dates: end: 202304
  6. POSACONAZOLE [Concomitant]
     Active Substance: POSACONAZOLE
     Indication: Antifungal prophylaxis

REACTIONS (2)
  - Cytopenia [Recovered/Resolved]
  - Off label use [Unknown]
